FAERS Safety Report 9861220 (Version 3)
Quarter: 2014Q1

REPORT INFORMATION
  Report Type: Report from Study
  Country: ES (occurrence: ES)
  Receive Date: 20140202
  Receipt Date: 20140326
  Transmission Date: 20141002
  Serious: Yes (Death, Hospitalization, Disabling)
  Sender: FDA-Public Use
  Company Number: ES-BRISTOL-MYERS SQUIBB COMPANY-20072401

PATIENT
  Age: 61 Year
  Sex: Male

DRUGS (9)
  1. BELATACEPT [Suspect]
     Indication: LIVER TRANSPLANT
     Dates: start: 20090314, end: 20110113
  2. MYCOPHENOLATE MOFETIL [Suspect]
     Indication: LIVER TRANSPLANT
     Dates: start: 20090315
  3. TACROLIMUS [Suspect]
     Indication: LIVER TRANSPLANT
     Dates: start: 20110209
  4. CYCLOSPORIN [Concomitant]
  5. INSULIN [Concomitant]
  6. NIFEDIPINE [Concomitant]
  7. MINIPRES [Concomitant]
  8. LISINOPRIL [Concomitant]
  9. OMEPRAZOLE [Concomitant]

REACTIONS (3)
  - Cardio-respiratory arrest [Fatal]
  - Cerebellar syndrome [Not Recovered/Not Resolved]
  - Creutzfeldt-Jakob disease [Not Recovered/Not Resolved]
